FAERS Safety Report 24029622 (Version 2)
Quarter: 2024Q3

REPORT INFORMATION
  Report Type: Spontaneous
  Country: NZ (occurrence: NZ)
  Receive Date: 20240628
  Receipt Date: 20240712
  Transmission Date: 20241016
  Serious: Yes (Life-Threatening)
  Sender: ABBVIE
  Company Number: NZ-LUNDBECK-DKLU4000734

PATIENT
  Age: 68 Year
  Sex: Female

DRUGS (5)
  1. CITALOPRAM [Suspect]
     Active Substance: CITALOPRAM\CITALOPRAM HYDROBROMIDE
     Indication: Anxiety disorder
     Dosage: 10 003
     Route: 048
     Dates: start: 20080822, end: 20080826
  2. ALPRAZOLAM [Concomitant]
     Active Substance: ALPRAZOLAM
     Indication: Anxiety disorder
     Dosage: 1.5 003
     Route: 048
     Dates: start: 20080601, end: 20080822
  3. DIAZEPAM [Concomitant]
     Active Substance: DIAZEPAM
     Indication: Hypersomnia
     Dosage: 2 003
     Route: 048
     Dates: start: 20080825, end: 20080826
  4. ASPIRIN [Concomitant]
     Active Substance: ASPIRIN
     Indication: Product used for unknown indication
     Dosage: 100 003
     Route: 048
     Dates: start: 20080701
  5. ATORVASTATIN [Concomitant]
     Active Substance: ATORVASTATIN
     Indication: Product used for unknown indication
     Dosage: 20 003
     Route: 048
     Dates: start: 20051101

REACTIONS (4)
  - Seizure [Not Recovered/Not Resolved]
  - Delirium [Not Recovered/Not Resolved]
  - Hyponatraemia [Not Recovered/Not Resolved]
  - Medication error [Not Recovered/Not Resolved]
